FAERS Safety Report 13183603 (Version 1)
Quarter: 2017Q1

REPORT INFORMATION
  Report Type: Spontaneous
  Country: US (occurrence: US)
  Receive Date: 20170203
  Receipt Date: 20170203
  Transmission Date: 20170428
  Serious: No
  Sender: FDA-Public Use
  Company Number: None

PATIENT
  Age: 56 Year
  Sex: Male
  Weight: 81.4 kg

DRUGS (1)
  1. IOPROMIDE 300MG I/ML BAYER HEALTHCARE [Suspect]
     Active Substance: IOPROMIDE
     Indication: THYMIC CANCER METASTATIC
     Route: 042
     Dates: start: 20170120

REACTIONS (2)
  - Vomiting [None]
  - Contrast media reaction [None]

NARRATIVE: CASE EVENT DATE: 20170120
